FAERS Safety Report 19009789 (Version 4)
Quarter: 2021Q2

REPORT INFORMATION
  Report Type: Spontaneous
  Country: AU (occurrence: AU)
  Receive Date: 20210315
  Receipt Date: 20210420
  Transmission Date: 20210717
  Serious: Yes (Other)
  Sender: FDA-Public Use
  Company Number: AU-GW PHARMA-202103AUGW01039

PATIENT

DRUGS (1)
  1. EPIDIOLEX [Suspect]
     Active Substance: CANNABIDIOL
     Indication: RETT SYNDROME
     Dosage: 40 MG/KG/DAY, 1200 MILLIGRAM, BID
     Route: 048
     Dates: start: 201609

REACTIONS (4)
  - Seizure [Not Recovered/Not Resolved]
  - Product odour abnormal [Unknown]
  - Liquid product physical issue [Unknown]
  - Prescribed overdose [Unknown]

NARRATIVE: CASE EVENT DATE: 201609
